FAERS Safety Report 6835400-3 (Version None)
Quarter: 2010Q3

REPORT INFORMATION
  Report Type: 
  Country: None (occurrence: None)
  Receive Date: 20100713
  Receipt Date: 20100705
  Transmission Date: 20110219
  Serious: Yes (Hospitalization)
  Sender: FDA-Public Use
  Company Number: DE-ASTRAZENECA-2009PK01062

PATIENT
  Age: 84 Year
  Sex: Female
  Weight: 57 kg

DRUGS (11)
  1. SYMBICORT [Interacting]
     Indication: CHRONIC OBSTRUCTIVE PULMONARY DISEASE
     Dosage: 1 DF BID
     Route: 055
     Dates: start: 20080601, end: 20090204
  2. XIPAMIDE [Interacting]
     Indication: HYPERTENSION
     Route: 048
     Dates: start: 20081001, end: 20090204
  3. PREDNISOLON [Suspect]
     Indication: CHRONIC OBSTRUCTIVE PULMONARY DISEASE
     Route: 048
     Dates: start: 20070101, end: 20090204
  4. OMEPRAZOLE [Concomitant]
     Indication: PROPHYLAXIS AGAINST GASTROINTESTINAL ULCER
     Route: 048
     Dates: start: 20081001, end: 20090204
  5. L-THYROXIN ^HENNING BERLIN^ [Concomitant]
     Indication: HYPOTHYROIDISM
     Route: 048
     Dates: start: 20050301, end: 20090204
  6. RADEDORM [Concomitant]
     Indication: SLEEP DISORDER
     Route: 048
     Dates: start: 20060908, end: 20090204
  7. XUSAL [Concomitant]
     Indication: MULTIPLE ALLERGIES
     Route: 048
     Dates: start: 20080922, end: 20090204
  8. DIGITOXIN TAB [Concomitant]
     Indication: CARDIAC FAILURE
     Dosage: 5 DAYS A WEEK
     Route: 048
     Dates: start: 20060908, end: 20090204
  9. SPIRIVA [Concomitant]
     Indication: CHRONIC OBSTRUCTIVE PULMONARY DISEASE
     Route: 055
     Dates: start: 20070401, end: 20090204
  10. NULYTELY [Concomitant]
     Indication: CONSTIPATION
     Route: 048
     Dates: start: 20050101, end: 20090204
  11. LACTULOSE [Concomitant]
     Indication: CONSTIPATION
     Route: 048
     Dates: start: 20050101, end: 20090204

REACTIONS (2)
  - DRUG INTERACTION [None]
  - OSTEOPOROTIC FRACTURE [None]
